FAERS Safety Report 24103481 (Version 1)
Quarter: 2024Q3

REPORT INFORMATION
  Report Type: Spontaneous
  Country: US (occurrence: US)
  Receive Date: 20240717
  Receipt Date: 20240717
  Transmission Date: 20241016
  Serious: No
  Sender: AUROBINDO
  Company Number: US-AUROBINDO-AUR-APL-2023-051404

PATIENT
  Age: 21 Year
  Sex: Male
  Weight: 104.3 kg

DRUGS (1)
  1. OMEPRAZOLE [Suspect]
     Active Substance: OMEPRAZOLE
     Indication: Dyspepsia
     Dosage: 1 DOSAGE FORM, ONCE A DAY (EVERY 24 HOURS) (14)
     Route: 065
     Dates: start: 20230605, end: 20230622

REACTIONS (2)
  - Drug ineffective [Unknown]
  - Therapy cessation [Unknown]

NARRATIVE: CASE EVENT DATE: 20230627
